FAERS Safety Report 10434220 (Version 1)
Quarter: 2014Q3

REPORT INFORMATION
  Report Type: Spontaneous
  Country: US (occurrence: US)
  Receive Date: 20140905
  Receipt Date: 20140905
  Transmission Date: 20150326
  Serious: No
  Sender: FDA-Public Use
  Company Number: US-009507513-1408USA015559

PATIENT
  Age: 64 Year
  Sex: Male

DRUGS (1)
  1. MAXALT [Suspect]
     Active Substance: RIZATRIPTAN BENZOATE
     Indication: MIGRAINE
     Dosage: HALF A TABLET, EVERY 2-3 DAYS
     Route: 048
     Dates: end: 201404

REACTIONS (15)
  - Urine output increased [Recovering/Resolving]
  - Depression [Recovering/Resolving]
  - Pruritus [Recovering/Resolving]
  - Urticaria [Recovering/Resolving]
  - Pollakiuria [Recovering/Resolving]
  - Eczema [Recovering/Resolving]
  - Chills [Recovering/Resolving]
  - Flatulence [Recovering/Resolving]
  - Agitation [Recovering/Resolving]
  - Anxiety [Recovering/Resolving]
  - Decreased appetite [Recovering/Resolving]
  - Temperature intolerance [Recovering/Resolving]
  - Wrong technique in drug usage process [Unknown]
  - Morton^s neuralgia [Recovering/Resolving]
  - Diarrhoea [Recovering/Resolving]

NARRATIVE: CASE EVENT DATE: 201303
